FAERS Safety Report 25803680 (Version 1)
Quarter: 2025Q3

REPORT INFORMATION
  Report Type: Other
  Country: TR (occurrence: TR)
  Receive Date: 20250915
  Receipt Date: 20250915
  Transmission Date: 20251020
  Serious: Yes (Other)
  Sender: Kanchan Healthcare
  Company Number: TR-Kanchan Healthcare INC-2184534

PATIENT
  Age: 60 Year
  Sex: Male

DRUGS (7)
  1. ETHAMBUTOL HYDROCHLORIDE [Suspect]
     Active Substance: ETHAMBUTOL HYDROCHLORIDE
     Indication: Pulmonary tuberculosis
  2. ETHAMBUTOL HYDROCHLORIDE [Suspect]
     Active Substance: ETHAMBUTOL HYDROCHLORIDE
     Indication: Peritoneal tuberculosis
  3. ISONIAZID [Suspect]
     Active Substance: ISONIAZID
  4. CYCLOSERINE [Suspect]
     Active Substance: CYCLOSERINE
  5. MOXIFLOXACIN [Suspect]
     Active Substance: MOXIFLOXACIN
  6. PYRAZINAMIDE [Suspect]
     Active Substance: PYRAZINAMIDE
  7. RIFAMPIN [Suspect]
     Active Substance: RIFAMPIN

REACTIONS (4)
  - Hyperbilirubinaemia [Unknown]
  - Drug ineffective [Unknown]
  - Aspartate aminotransferase increased [Unknown]
  - Alanine aminotransferase increased [Unknown]
